FAERS Safety Report 4947666-5 (Version None)
Quarter: 2006Q1

REPORT INFORMATION
  Report Type: 
  Country: None (occurrence: None)
  Receive Date: 20060320
  Receipt Date: 20060309
  Transmission Date: 20060701
  Serious: Yes (Life-Threatening, Hospitalization, Other)
  Sender: FDA-Public Use
  Company Number: US-BRISTOL-MYERS SQUIBB COMPANY-13309182

PATIENT
  Age: 53 Year
  Sex: Female

DRUGS (11)
  1. DIDANOSINE [Suspect]
     Indication: HIV INFECTION
     Route: 048
     Dates: end: 20021201
  2. VIREAD [Suspect]
     Indication: HIV INFECTION
     Dosage: 150 MG DAILY FROM 19-JUN-2002 TO 23-SEP-2004, RESTARTED 19-MAY-2005
     Route: 048
     Dates: start: 20020619, end: 20050801
  3. SUSTIVA [Concomitant]
     Indication: HIV INFECTION
     Route: 048
     Dates: start: 20040619
  4. KALETRA [Concomitant]
     Indication: HIV INFECTION
     Route: 048
     Dates: start: 20031225
  5. ZYPREXA [Concomitant]
     Indication: DEPRESSION
     Route: 048
     Dates: start: 20030101
  6. REMERON [Concomitant]
     Indication: DEPRESSION
     Route: 048
     Dates: start: 20030101
  7. CLONAZEPAM [Concomitant]
     Indication: INSOMNIA
     Route: 048
     Dates: start: 20020101
  8. TRAZODONE HCL [Concomitant]
     Indication: DEPRESSION
     Route: 048
     Dates: start: 19970101
  9. PROTONIX [Concomitant]
     Indication: NAUSEA
     Route: 048
     Dates: start: 20040101
  10. MS CONTIN [Concomitant]
     Indication: PAIN
     Route: 048
     Dates: start: 19840101
  11. PERCOCET [Concomitant]
     Indication: PAIN
     Route: 048
     Dates: start: 19840101

REACTIONS (4)
  - FANCONI SYNDROME [None]
  - FEMORAL NECK FRACTURE [None]
  - HIP FRACTURE [None]
  - PANCREATITIS [None]
